FAERS Safety Report 21109194 (Version 1)
Quarter: 2022Q3

REPORT INFORMATION
  Report Type: Spontaneous
  Country: US (occurrence: US)
  Receive Date: 20220721
  Receipt Date: 20220721
  Transmission Date: 20221027
  Serious: Yes (Hospitalization, Other)
  Sender: FDA-Public Use
  Company Number: US-BoehringerIngelheim-2022-BI-181896

PATIENT
  Age: 81 Year
  Sex: Male
  Weight: 82 kg

DRUGS (9)
  1. PRADAXA [Suspect]
     Active Substance: DABIGATRAN ETEXILATE MESYLATE
     Indication: Atrial fibrillation
     Route: 048
     Dates: start: 20211121
  2. DILTIAZEM [Concomitant]
     Active Substance: DILTIAZEM
     Indication: Atrial fibrillation
     Dates: start: 20211121
  3. LOSARTAN [Concomitant]
     Active Substance: LOSARTAN
     Indication: Hypertension
     Dates: start: 201801
  4. ATORVASTATIN [Concomitant]
     Active Substance: ATORVASTATIN
     Indication: Dyslipidaemia
     Dates: start: 20170811
  5. METOPROLOL [Concomitant]
     Active Substance: METOPROLOL
     Indication: Atrial fibrillation
     Dates: start: 20211121
  6. OXYCODONE [Concomitant]
     Active Substance: OXYCODONE
     Indication: Back pain
     Dates: start: 1995
  7. CEFPODOXIME [Concomitant]
     Active Substance: CEFPODOXIME
     Indication: Cellulitis
     Dates: start: 20211121
  8. TRIAMCINOLONE ACETONIDE [Concomitant]
     Active Substance: TRIAMCINOLONE ACETONIDE
     Indication: Cellulitis
     Route: 061
     Dates: start: 20211121
  9. GABAPENTIN [Concomitant]
     Active Substance: GABAPENTIN
     Indication: Cellulitis
     Dates: start: 20211121

REACTIONS (10)
  - Upper gastrointestinal haemorrhage [Recovered/Resolved]
  - Melaena [Recovered/Resolved]
  - Herpes oesophagitis [Recovered/Resolved]
  - Reactive gastropathy [Recovered/Resolved]
  - Duodenal ulcer [Recovered/Resolved]
  - Asthenia [Recovered/Resolved]
  - Blood loss anaemia [Recovered/Resolved]
  - Fall [Recovered/Resolved]
  - Cellulitis [Recovered/Resolved]
  - Thrombosis [Recovered/Resolved]

NARRATIVE: CASE EVENT DATE: 20211101
